FAERS Safety Report 21733311 (Version 2)
Quarter: 2023Q1

REPORT INFORMATION
  Report Type: Spontaneous
  Country: IT (occurrence: IT)
  Receive Date: 20221215
  Receipt Date: 20230102
  Transmission Date: 20230418
  Serious: Yes (Hospitalization, Other)
  Sender: FDA-Public Use
  Company Number: IT-BoehringerIngelheim-2022-BI-207521

PATIENT
  Age: 75 Year
  Sex: Male

DRUGS (1)
  1. PRADAXA [Suspect]
     Active Substance: DABIGATRAN ETEXILATE MESYLATE
     Indication: Prophylaxis
     Dosage: 150 MG X 2 REGULARLY TAKEN

REACTIONS (2)
  - Cerebrovascular accident [Recovering/Resolving]
  - Vomiting [Unknown]

NARRATIVE: CASE EVENT DATE: 20221207
